FAERS Safety Report 6493367-4 (Version None)
Quarter: 2009Q4

REPORT INFORMATION
  Report Type: 
  Country: None (occurrence: None)
  Receive Date: 20091214
  Receipt Date: 20091208
  Transmission Date: 20100525
  Serious: Yes (Hospitalization)
  Sender: FDA-Public Use
  Company Number: IN-BRISTOL-MYERS SQUIBB COMPANY-14803738

PATIENT
  Age: 56 Year
  Sex: Male
  Weight: 53 kg

DRUGS (16)
  1. PACLITAXEL [Suspect]
     Indication: NON-SMALL CELL LUNG CANCER
     Route: 042
     Dates: start: 20090905
  2. CARBOPLATIN [Suspect]
     Indication: NON-SMALL CELL LUNG CANCER
     Route: 042
     Dates: start: 20090905
  3. CP-751,871 [Suspect]
     Indication: NON-SMALL CELL LUNG CANCER
     Dosage: 1100MG ALSO EQUIVALENT TO 55ML
     Route: 042
     Dates: start: 20090905
  4. DEXONA [Concomitant]
     Indication: HYPERSENSITIVITY
     Dosage: FORM=INJ
     Dates: start: 20090905, end: 20090905
  5. RANTAC [Concomitant]
     Indication: HYPERCHLORHYDRIA
     Dosage: FORM=INJ
     Dates: start: 20090905, end: 20090905
  6. PHENERGAN HCL [Concomitant]
     Indication: VOMITING
     Dosage: FORM=INJ
     Dates: start: 20090905, end: 20090905
  7. PALONOSETRON [Concomitant]
     Indication: VOMITING
     Dosage: FORM=INJ
     Dates: start: 20090905, end: 20090905
  8. GRANISETRON HCL [Concomitant]
     Dosage: FORM=TABS
     Dates: start: 20090907, end: 20090913
  9. HISTAC [Concomitant]
     Indication: ANTACID THERAPY
     Dosage: FORM=TABS
     Dates: start: 20090907, end: 20090913
  10. TEGRETOL [Concomitant]
     Dates: start: 20090907, end: 20090913
  11. SODIUM BICARBONATE IN PLASTIC CONTAINER [Concomitant]
     Dosage: FORM=TABS
     Dates: start: 20090907, end: 20090913
  12. ULTRACET [Concomitant]
     Indication: ANALGESIC THERAPY
     Dosage: FORM=TABS
     Dates: start: 20090907, end: 20090913
  13. DUPHALAC SYRUP [Concomitant]
     Indication: LAXATIVE SUPPORTIVE CARE
     Dates: start: 20090907, end: 20090913
  14. FILGRASTIM [Concomitant]
     Indication: NEUTROPENIA
     Dosage: FORM=INJ
     Dates: start: 20090908, end: 20090911
  15. CEFUROXIME AXETIL [Concomitant]
     Indication: ANTIBIOTIC THERAPY
     Dosage: FORM=TABS
     Dates: start: 20090907, end: 20090911
  16. FLUCONAZOLE [Concomitant]
     Dosage: FORM=CAPS
     Dates: start: 20090907, end: 20090911

REACTIONS (6)
  - ASTHENIA [None]
  - BLOOD POTASSIUM DECREASED [None]
  - HAEMOGLOBIN DECREASED [None]
  - HALLUCINATION [None]
  - INSOMNIA [None]
  - PAIN IN EXTREMITY [None]
